FAERS Safety Report 18972794 (Version 1)
Quarter: 2021Q1

REPORT INFORMATION
  Report Type: Spontaneous
  Country: US (occurrence: US)
  Receive Date: 20210304
  Receipt Date: 20210304
  Transmission Date: 20210420
  Serious: Yes (Hospitalization)
  Sender: FDA-Public Use
  Company Number: None

PATIENT
  Age: 12 Year
  Sex: Male

DRUGS (1)
  1. CAPECITABINE, 500MG [Suspect]
     Active Substance: CAPECITABINE
     Indication: COLON CANCER
     Route: 058
     Dates: start: 20200904

REACTIONS (3)
  - Intentional dose omission [None]
  - Oropharyngeal pain [None]
  - Viral infection [None]

NARRATIVE: CASE EVENT DATE: 20210303
